FAERS Safety Report 25843532 (Version 1)
Quarter: 2025Q3

REPORT INFORMATION
  Report Type: Spontaneous
  Country: GB (occurrence: GB)
  Receive Date: 20250924
  Receipt Date: 20250924
  Transmission Date: 20251020
  Serious: Yes (Other)
  Sender: ALEXION PHARMACEUTICALS
  Company Number: None

PATIENT
  Age: 63 Year
  Sex: Male

DRUGS (10)
  1. DAPAGLIFLOZIN [Suspect]
     Active Substance: DAPAGLIFLOZIN
     Route: 065
  2. OXYCODONE [Concomitant]
     Active Substance: OXYCODONE
  3. FLUCLOXACILLIN [Concomitant]
     Active Substance: FLUCLOXACILLIN
  4. RAMIPRIL [Concomitant]
     Active Substance: RAMIPRIL
  5. Balneum [Concomitant]
  6. SPIRONOLACTONE [Concomitant]
     Active Substance: SPIRONOLACTONE
  7. BUPRENORPHINE [Concomitant]
     Active Substance: BUPRENORPHINE
  8. FUROSEMIDE [Concomitant]
     Active Substance: FUROSEMIDE
  9. EDOXABAN [Concomitant]
     Active Substance: EDOXABAN
  10. CHOLECALCIFEROL [Concomitant]
     Active Substance: CHOLECALCIFEROL

REACTIONS (1)
  - Cellulitis [Unknown]
